FAERS Safety Report 16343067 (Version 6)
Quarter: 2019Q3

REPORT INFORMATION
  Report Type: Report from Study
  Country: TW (occurrence: TW)
  Receive Date: 20190522
  Receipt Date: 20190705
  Transmission Date: 20191004
  Serious: Yes (Other)
  Sender: FDA-Public Use
  Company Number: PHHY2018TW193419

PATIENT
  Age: 59 Year
  Sex: Male
  Weight: 83.5 kg

DRUGS (32)
  1. EPOETIN BETA [Concomitant]
     Active Substance: ERYTHROPOIETIN
     Dosage: 1 OT, UNK
     Route: 058
     Dates: start: 20190222, end: 20190301
  2. FEBUXOSTAT. [Concomitant]
     Active Substance: FEBUXOSTAT
     Indication: GOUT
     Dosage: 40 OT, UNK
     Route: 048
     Dates: start: 20180828, end: 20190313
  3. FUROSEMIDE. [Concomitant]
     Active Substance: FUROSEMIDE
     Indication: CHRONIC KIDNEY DISEASE
     Dosage: 20 OT, UNK
     Route: 048
     Dates: start: 20180828, end: 20190419
  4. FUROSEMIDE. [Concomitant]
     Active Substance: FUROSEMIDE
     Dosage: 20 OT, UNK
     Route: 048
     Dates: start: 20180828, end: 20190419
  5. REHISTACAL B6 [Concomitant]
     Indication: ANAEMIA PROPHYLAXIS
     Dosage: 5 OT, UNK
     Route: 042
     Dates: start: 20181102, end: 20181102
  6. VOTRIENT [Suspect]
     Active Substance: PAZOPANIB HYDROCHLORIDE
     Indication: RENAL CELL CARCINOMA
     Dosage: 600 MG, QD
     Route: 048
     Dates: start: 20181003
  7. VOTRIENT [Suspect]
     Active Substance: PAZOPANIB HYDROCHLORIDE
     Dosage: 600 MG, QD
     Route: 048
     Dates: start: 20181023, end: 20181217
  8. ATANAAL [Concomitant]
     Indication: HYPERTENSION
     Dosage: 5 OT, UNK
     Route: 048
     Dates: start: 20190125, end: 20190126
  9. FUROSEMIDE. [Concomitant]
     Active Substance: FUROSEMIDE
     Dosage: 40 OT, UNK
     Route: 048
     Dates: start: 20190107, end: 20190114
  10. CAPDON [Concomitant]
     Indication: HYPERTENSION
     Dosage: 25 OT, UNK
     Route: 048
     Dates: start: 20190125, end: 20190128
  11. CLONIDINE. [Concomitant]
     Active Substance: CLONIDINE
     Indication: HYPERTENSION
     Dosage: 0.075 OT, UNK
     Route: 048
     Dates: start: 20190128, end: 20190325
  12. OSENI [Concomitant]
     Active Substance: ALOGLIPTIN BENZOATE\PIOGLITAZONE HYDROCHLORIDE
     Indication: TYPE 2 DIABETES MELLITUS
     Dosage: 0.5 OT, UNK
     Route: 048
     Dates: start: 20180828, end: 20181025
  13. SOLU-MEDROL [Concomitant]
     Active Substance: METHYLPREDNISOLONE SODIUM SUCCINATE
     Indication: ANAEMIA PROPHYLAXIS
     Dosage: 40 OT, UNK
     Route: 042
     Dates: start: 20181102, end: 20181102
  14. ACETAMINOPHEN. [Concomitant]
     Active Substance: ACETAMINOPHEN
     Indication: PROPHYLAXIS
     Dosage: 500 OT, UNK
     Route: 048
     Dates: start: 20181023, end: 20181104
  15. FUROSEMIDE. [Concomitant]
     Active Substance: FUROSEMIDE
     Dosage: 120 OT, UNK
     Route: 048
     Dates: start: 20190222, end: 20190329
  16. NORVASC [Concomitant]
     Active Substance: AMLODIPINE BESYLATE
     Dosage: 5 OT, UNK
     Route: 048
     Dates: start: 20190218, end: 20190311
  17. REHISTACAL B6 [Concomitant]
     Dosage: 5 OT, UNK
     Route: 042
     Dates: start: 20190125, end: 20190125
  18. ULTRACET [Concomitant]
     Active Substance: ACETAMINOPHEN\TRAMADOL HYDROCHLORIDE
     Indication: PAIN PROPHYLAXIS
     Dosage: 1 OT, UNK
     Route: 050
     Dates: start: 20190218, end: 20190325
  19. NIFEDIPINE. [Concomitant]
     Active Substance: NIFEDIPINE
     Indication: HYPERTENSION
     Dosage: 30 OT, UNK
     Route: 048
     Dates: start: 20190311, end: 20190325
  20. ETOFENAMATE [Concomitant]
     Active Substance: ETOFENAMATE
     Indication: ARTHRALGIA
     Dosage: 1 OT, UNK
     Route: 061
     Dates: start: 20190114, end: 20190121
  21. DIPHENHYDRAMINE. [Concomitant]
     Active Substance: DIPHENHYDRAMINE
     Indication: ANAEMIA PROPHYLAXIS
     Dosage: 30 OT, UNK
     Route: 042
     Dates: start: 20181226, end: 20181227
  22. VOTRIENT [Suspect]
     Active Substance: PAZOPANIB HYDROCHLORIDE
     Dosage: 800 MG, QD
     Route: 048
     Dates: start: 20181019, end: 20181022
  23. FUROSEMIDE. [Concomitant]
     Active Substance: FUROSEMIDE
     Dosage: 20 OT, UNK
     Route: 042
     Dates: start: 20181227, end: 20181227
  24. FUROSEMIDE. [Concomitant]
     Active Substance: FUROSEMIDE
     Dosage: 80 OT, UNK
     Route: 048
     Dates: start: 20190215, end: 20190222
  25. EPOETIN BETA [Concomitant]
     Active Substance: ERYTHROPOIETIN
     Indication: CHRONIC KIDNEY DISEASE
     Dosage: 1 OT, UNK
     Route: 058
     Dates: start: 20190121, end: 20190122
  26. SOLU-MEDROL [Concomitant]
     Active Substance: METHYLPREDNISOLONE SODIUM SUCCINATE
     Dosage: 40 OT, UNK
     Route: 042
     Dates: start: 20190125, end: 20190125
  27. VOTRIENT [Suspect]
     Active Substance: PAZOPANIB HYDROCHLORIDE
     Dosage: 400 MG, QD
     Route: 048
     Dates: start: 20190107, end: 20190210
  28. COLCHICINE. [Concomitant]
     Active Substance: COLCHICINE
     Indication: GOUT
     Dosage: 0.25 OT, UNK
     Route: 048
     Dates: start: 20181218, end: 20181221
  29. EXFORGE [Concomitant]
     Active Substance: AMLODIPINE BESYLATE\VALSARTAN
     Indication: HYPERTENSION
     Dosage: 1 OT, UNK
     Route: 048
     Dates: start: 20180828, end: 20190410
  30. NORVASC [Concomitant]
     Active Substance: AMLODIPINE BESYLATE
     Indication: HYPERTENSION
     Dosage: 5 OT, UNK
     Route: 048
     Dates: start: 20190128
  31. EPOETIN BETA [Concomitant]
     Active Substance: ERYTHROPOIETIN
     Dosage: 1 OT, UNK
     Route: 058
     Dates: start: 20190308, end: 20190329
  32. DIPHENHYDRAMINE. [Concomitant]
     Active Substance: DIPHENHYDRAMINE
     Dosage: 30 OT, UNK
     Route: 042
     Dates: start: 20190225, end: 20190226

REACTIONS (9)
  - Blood creatinine increased [Not Recovered/Not Resolved]
  - White blood cell count decreased [Recovered/Resolved]
  - Arthralgia [Not Recovered/Not Resolved]
  - Anaemia [Recovered/Resolved]
  - Abdominal discomfort [Not Recovered/Not Resolved]
  - Gastric ulcer [Recovered/Resolved]
  - Pancytopenia [Recovering/Resolving]
  - Epigastric discomfort [Recovered/Resolved]
  - Hiccups [Recovered/Resolved]

NARRATIVE: CASE EVENT DATE: 20181023
